FAERS Safety Report 5950558 (Version 21)
Quarter: 2016Q3

REPORT INFORMATION
  Report Type: Spontaneous
  Country: US (occurrence: US)
  Receive Date: 20051223
  Receipt Date: 20160715
  Transmission Date: 20161109
  Serious: Yes (Hospitalization, Disabling, Other)
  Sender: FDA-Public Use
  Company Number: US-ROCHE-428465

PATIENT
  Age: 18 Year
  Sex: Female
  Weight: 147 kg

DRUGS (2)
  1. TYLENOL [Concomitant]
     Active Substance: ACETAMINOPHEN
     Indication: HEADACHE
  2. ACCUTANE [Suspect]
     Active Substance: ISOTRETINOIN
     Indication: ACNE CYSTIC
     Route: 048
     Dates: start: 20010718, end: 200112

REACTIONS (35)
  - Ventricular extrasystoles [Unknown]
  - Dehydration [Recovering/Resolving]
  - Gastrooesophageal reflux disease [Unknown]
  - Arthritis [Unknown]
  - Inflammatory bowel disease [Unknown]
  - Crohn^s disease [Unknown]
  - Hepatic steatosis [Unknown]
  - Dysphagia [Unknown]
  - Dyspepsia [Unknown]
  - Generalised anxiety disorder [Not Recovered/Not Resolved]
  - Gastritis [Unknown]
  - Duodenal ulcer [Unknown]
  - Insomnia [Not Recovered/Not Resolved]
  - Pneumonia [Recovering/Resolving]
  - Irritable bowel syndrome [Unknown]
  - Dermatitis atopic [Unknown]
  - Back pain [Not Recovered/Not Resolved]
  - Colitis [Unknown]
  - Gastric ulcer [Unknown]
  - Oesophageal ulcer [Unknown]
  - Pneumonia [Unknown]
  - Decreased appetite [Unknown]
  - Supraventricular tachycardia [Unknown]
  - Megacolon [Recovering/Resolving]
  - Eczema nummular [Unknown]
  - Liver function test increased [Recovering/Resolving]
  - Pseudopolyp [Unknown]
  - Weight increased [Unknown]
  - Gastrointestinal disorder [Unknown]
  - Intestinal haemorrhage [Unknown]
  - Colitis ulcerative [Recovering/Resolving]
  - Microcytic anaemia [Recovered/Resolved]
  - Iron deficiency anaemia [Recovering/Resolving]
  - Thrombocytopenia [Recovering/Resolving]
  - Depression [Not Recovered/Not Resolved]

NARRATIVE: CASE EVENT DATE: 200310
